FAERS Safety Report 6308716-7 (Version None)
Quarter: 2009Q3

REPORT INFORMATION
  Report Type: 
  Country: None (occurrence: None)
  Receive Date: 20090813
  Receipt Date: 20080211
  Transmission Date: 20100115
  Serious: Yes (Hospitalization)
  Sender: FDA-Public Use
  Company Number: US-ALLERGAN-0801587US

PATIENT
  Sex: Female

DRUGS (1)
  1. COMBIGAN [Suspect]
     Indication: GLAUCOMA

REACTIONS (1)
  - DEPRESSION [None]
